FAERS Safety Report 18004893 (Version 1)
Quarter: 2020Q3

REPORT INFORMATION
  Report Type: Spontaneous
  Country: PL (occurrence: PL)
  Receive Date: 20200709
  Receipt Date: 20200709
  Transmission Date: 20201103
  Serious: Yes (Other)
  Sender: FDA-Public Use
  Company Number: PL-BAUSCH-BL-2020-019084

PATIENT
  Age: 63 Year
  Sex: Female

DRUGS (15)
  1. INSULIN [Suspect]
     Active Substance: INSULIN NOS
     Dosage: GRADUALLY DOWN?TITRATED; FURTHER DECREASED
     Route: 065
  2. INSULIN [Suspect]
     Active Substance: INSULIN NOS
     Indication: DIABETES MELLITUS
     Route: 065
  3. METHIMAZOLE. [Suspect]
     Active Substance: METHIMAZOLE
     Dosage: INCREASED
     Route: 065
  4. PROPYLTHIOURACIL. [Suspect]
     Active Substance: PROPYLTHIOURACIL
     Indication: HYPERTHYROIDISM
     Route: 065
  5. PROPRANOLOL [Suspect]
     Active Substance: PROPRANOLOL HYDROCHLORIDE
     Dosage: INCREASED
     Route: 065
  6. RAMIPRIL. [Suspect]
     Active Substance: RAMIPRIL
     Indication: CARDIAC FAILURE CHRONIC
     Route: 065
  7. PROPRANOLOL [Suspect]
     Active Substance: PROPRANOLOL HYDROCHLORIDE
     Indication: ATRIAL FIBRILLATION
     Route: 065
  8. METHIMAZOLE. [Suspect]
     Active Substance: METHIMAZOLE
     Indication: HYPERTHYROIDISM
     Route: 065
  9. DEXAVEN [Suspect]
     Active Substance: DEXAMETHASONE
     Indication: HYPERTHYROIDISM
     Route: 065
  10. FUROSEMIDE. [Suspect]
     Active Substance: FUROSEMIDE
     Indication: CARDIAC FAILURE CHRONIC
     Route: 048
  11. DIGOXIN. [Suspect]
     Active Substance: DIGOXIN
     Route: 042
  12. LUGOL [Suspect]
     Active Substance: IODINE\POTASSIUM IODIDE
     Indication: HYPERTHYROIDISM
     Dosage: DOSE OF 30 DROPS/DAY IN FOUR DOSES, ONCE EVERY 6 HOURS
     Route: 065
  13. LITHIUM CARBONATE. [Suspect]
     Active Substance: LITHIUM CARBONATE
     Indication: HYPERTHYROIDISM
     Dosage: AT A DOSE OF 1000 MG/D IN FOUR DOSES, ONCE EVERY 6 HOURS
     Route: 065
  14. DIGOXIN. [Suspect]
     Active Substance: DIGOXIN
     Indication: CARDIAC FAILURE CHRONIC
     Route: 048
  15. BETALOC [Suspect]
     Active Substance: METOPROLOL TARTRATE
     Indication: HYPERTHYROIDISM
     Dosage: AT A DOSE OF 20 MG/DAY INTRAVENOUSLY USING AN INFUSION PUMP
     Route: 042

REACTIONS (2)
  - Agranulocytosis [Recovered/Resolved]
  - Therapy partial responder [Unknown]
